FAERS Safety Report 5642089-8 (Version None)
Quarter: 2008Q1

REPORT INFORMATION
  Report Type: 
  Country: None (occurrence: None)
  Receive Date: 20080227
  Receipt Date: 20080215
  Transmission Date: 20080703
  Serious: Yes (Other)
  Sender: FDA-Public Use
  Company Number: ES-PFIZER INC-2008016695

PATIENT
  Age: 45 Year
  Sex: Female

DRUGS (2)
  1. CHANTIX [Suspect]
     Indication: SMOKING CESSATION THERAPY
     Route: 048
     Dates: start: 20080128, end: 20080214
  2. ALL OTHER THERAPEUTIC PRODUCTS [Concomitant]

REACTIONS (8)
  - ANXIETY [None]
  - BREAST PAIN [None]
  - BREAST SWELLING [None]
  - CONSTIPATION [None]
  - FLUID RETENTION [None]
  - MENSTRUAL DISORDER [None]
  - VERTIGO [None]
  - VISION BLURRED [None]
